FAERS Safety Report 9848920 (Version 1)
Quarter: 2013Q4

REPORT INFORMATION
  Report Type: Spontaneous
  Country: US (occurrence: None)
  Receive Date: 20131224
  Receipt Date: 20131224
  Transmission Date: 20140711
  Serious: Yes (Life-Threatening)
  Sender: FDA-Public Use
  Company Number: PHEH2012US024703

PATIENT
  Age: 8 Year
  Sex: Female

DRUGS (1)
  1. FOCALIN XR (DEXMETHYLPHENIDATE HYDROCHLORIDE) EXTENDED RELEASE CAPSULES [Suspect]

REACTIONS (1)
  - Tachycardia [None]
